FAERS Safety Report 6483533-6 (Version None)
Quarter: 2009Q4

REPORT INFORMATION
  Report Type: 
  Country: None (occurrence: None)
  Receive Date: 20091209
  Receipt Date: 20091204
  Transmission Date: 20100525
  Serious: Yes (Hospitalization)
  Sender: FDA-Public Use
  Company Number: DE-ROCHE-663599

PATIENT
  Sex: Female
  Weight: 62 kg

DRUGS (8)
  1. AVASTIN [Suspect]
     Route: 042
     Dates: start: 20090911, end: 20090925
  2. TAXOL [Concomitant]
     Dosage: 12 APPLICATIONS WEEKLY IN THE PAST
     Route: 042
  3. TAXOL [Concomitant]
     Route: 042
     Dates: start: 20090911
  4. ZOMETA [Concomitant]
  5. AROMASIN [Concomitant]
  6. BISOPROLOL [Concomitant]
     Route: 048
  7. RAMIPRIL [Concomitant]
     Route: 048
  8. GABAPENTIN [Concomitant]
     Route: 048

REACTIONS (4)
  - ENTEROVESICAL FISTULA [None]
  - GENERAL PHYSICAL HEALTH DETERIORATION [None]
  - HERPES ZOSTER [None]
  - URINARY TRACT INFECTION [None]
